FAERS Safety Report 7942042-5 (Version None)
Quarter: 2011Q4

REPORT INFORMATION
  Report Type: 
  Country: None (occurrence: None)
  Receive Date: 20111128
  Receipt Date: 20111117
  Transmission Date: 20120403
  Serious: Yes (Other)
  Sender: FDA-Public Use
  Company Number: US-BAYER-2011-042896

PATIENT
  Age: 27 Year
  Sex: Female
  Weight: 106.58 kg

DRUGS (13)
  1. NORVASC [Concomitant]
     Dosage: UNK
     Dates: start: 20010101, end: 20100101
  2. AMLODIPINE [Concomitant]
     Dosage: 5 MG, BID
     Dates: start: 20010101, end: 20100101
  3. METOPROLOL TARTRATE [Concomitant]
     Dosage: 50 MG, BID
     Dates: start: 20010101, end: 20100101
  4. HYDROCHLOROTHIAZIDE [Concomitant]
     Dosage: 25 MG, QD
  5. LOTREL [Concomitant]
     Dosage: UNK
     Dates: start: 20010101, end: 20100101
  6. YASMIN [Suspect]
     Indication: CONTRACEPTION
     Dosage: UNK
     Dates: start: 20060401, end: 20061001
  7. LABETALOL HCL [Concomitant]
     Indication: HYPERTENSION
     Dosage: UNK
     Dates: start: 20070901
  8. YAZ [Suspect]
     Indication: PREMENSTRUAL SYNDROME
  9. YAZ [Suspect]
     Indication: CONTRACEPTION
     Dosage: UNK
     Dates: start: 20061101, end: 20071101
  10. LISINOPRIL [Concomitant]
     Dosage: UNK
     Dates: start: 20010101, end: 20100101
  11. PROTONIX [Concomitant]
     Indication: GASTRIC PH DECREASED
     Dosage: 40 MG, QD
     Dates: start: 20031101, end: 20070801
  12. METFORMIN HCL [Concomitant]
     Dosage: 500 MG, QD
  13. YASMIN [Suspect]
     Indication: PREMENSTRUAL SYNDROME

REACTIONS (6)
  - INJURY [None]
  - EMOTIONAL DISTRESS [None]
  - PAIN [None]
  - ANXIETY [None]
  - CHOLECYSTITIS CHRONIC [None]
  - GALLBLADDER INJURY [None]
